FAERS Safety Report 9315994 (Version 1)
Quarter: 2013Q2

REPORT INFORMATION
  Report Type: Spontaneous
  Country: US (occurrence: US)
  Receive Date: 20130530
  Receipt Date: 20130530
  Transmission Date: 20140414
  Serious: Yes (Other)
  Sender: FDA-Public Use
  Company Number: US-BIOGENIDEC-2013BI048163

PATIENT
  Sex: Female

DRUGS (1)
  1. AVONEX [Suspect]
     Indication: MULTIPLE SCLEROSIS
     Route: 030
     Dates: start: 20120215

REACTIONS (5)
  - Cerebrovascular accident [Recovered/Resolved]
  - Mental disorder [Not Recovered/Not Resolved]
  - Psychomotor hyperactivity [Unknown]
  - Balance disorder [Recovered/Resolved]
  - Depression [Unknown]
